FAERS Safety Report 7588338-0 (Version None)
Quarter: 2011Q3

REPORT INFORMATION
  Report Type: 
  Country: None (occurrence: None)
  Receive Date: 20110705
  Receipt Date: 20110620
  Transmission Date: 20111222
  Serious: Yes (Hospitalization)
  Sender: FDA-Public Use
  Company Number: JP-ASTRAZENECA-2011SE37945

PATIENT
  Age: 78 Year
  Sex: Female
  Weight: 63 kg

DRUGS (25)
  1. NIFLAN [Concomitant]
     Indication: CATARACT
  2. POSTERISAN [Concomitant]
     Indication: HAEMORRHOIDS
  3. AREDIA [Concomitant]
  4. METFORMIN HCL [Concomitant]
     Indication: DIABETES MELLITUS
  5. CEROCRAL [Concomitant]
  6. BUFFERIN [Concomitant]
     Indication: CEREBRAL INFARCTION
     Dates: start: 19940101
  7. EXEMESTANE [Suspect]
     Indication: BREAST CANCER
     Route: 048
     Dates: start: 20081209, end: 20101013
  8. SELBEX [Concomitant]
     Dates: start: 20051026
  9. RHUBARB [Concomitant]
  10. KETOPROFEN [Concomitant]
     Indication: PAIN
  11. ARIMIDEX [Suspect]
     Indication: BREAST CANCER
     Route: 048
     Dates: start: 20050704, end: 20081207
  12. TENAXIL [Concomitant]
     Indication: HYPERTENSION
     Dates: start: 20051012
  13. HEMOCURON [Concomitant]
     Indication: HAEMORRHOIDS
  14. RHYTHMY [Concomitant]
     Dates: start: 20050713
  15. METFORMIN HCL [Concomitant]
  16. ALPRAZOLAM [Concomitant]
     Indication: AUTONOMIC NEUROPATHY
  17. BISOPROLOL FUMARATE [Concomitant]
     Indication: HYPERTENSION
     Dates: start: 20051116
  18. LANDEL [Concomitant]
     Indication: HYPERTENSION
     Dates: start: 20060302
  19. LOXONIN [Concomitant]
     Indication: PAIN
     Dates: start: 20051109
  20. ATELEC [Concomitant]
  21. MAGNESIUM OXIDE [Concomitant]
  22. YODEL S [Concomitant]
     Indication: CONSTIPATION
     Dates: start: 20070427
  23. NORVASC [Concomitant]
     Indication: HYPERTENSION
     Dates: start: 20050819
  24. DIOVANE [Concomitant]
     Indication: HYPERTENSION
     Dates: start: 20051216
  25. SILECE [Concomitant]
     Indication: AUTONOMIC NEUROPATHY

REACTIONS (1)
  - NEPHROGENIC ANAEMIA [None]
